FAERS Safety Report 9442929 (Version 2)
Quarter: 2013Q3

REPORT INFORMATION
  Report Type: Spontaneous
  Country: BE (occurrence: BE)
  Receive Date: 20130806
  Receipt Date: 20130821
  Transmission Date: 20140515
  Serious: Yes (Death)
  Sender: FDA-Public Use
  Company Number: BE-JNJFOC-20130717272

PATIENT
  Sex: Female

DRUGS (3)
  1. XEPLION [Suspect]
     Indication: DELUSION
     Route: 030
  2. XEPLION [Suspect]
     Indication: DELUSION
     Route: 030
     Dates: start: 20130724
  3. ETHNINE [Concomitant]
     Route: 065

REACTIONS (2)
  - Sudden death [Fatal]
  - Treatment noncompliance [Unknown]
